FAERS Safety Report 20871446 (Version 3)
Quarter: 2022Q3

REPORT INFORMATION
  Report Type: Spontaneous
  Country: US (occurrence: US)
  Receive Date: 20220525
  Receipt Date: 20220706
  Transmission Date: 20221026
  Serious: Yes (Other)
  Sender: FDA-Public Use
  Company Number: US-BRISTOL-MYERS SQUIBB COMPANY-2022-031116

PATIENT
  Age: 60 Year
  Sex: Male
  Weight: 141 kg

DRUGS (14)
  1. REVLIMID [Suspect]
     Active Substance: LENALIDOMIDE
     Indication: Plasma cell myeloma
     Route: 048
     Dates: start: 20220410
  2. REVLIMID [Suspect]
     Active Substance: LENALIDOMIDE
     Route: 065
     Dates: start: 202204
  3. PENTAZOLE [PANTOPRAZOLE] [Concomitant]
     Indication: Product used for unknown indication
     Route: 065
  4. PEPCID [ALUMINIUM HYDROXIDE;MAGNESIUM TRISILICATE;SODIUM ALGINATE] [Concomitant]
     Indication: Product used for unknown indication
     Route: 065
  5. EMNORM [METFORMIN] [Concomitant]
     Indication: Product used for unknown indication
     Route: 065
  6. PREZAR [LOSARTAN] [Concomitant]
     Indication: Product used for unknown indication
     Route: 065
  7. DIASTAT [Concomitant]
     Active Substance: DIAZEPAM
     Indication: Product used for unknown indication
     Route: 065
  8. DERONIL [Concomitant]
     Indication: Product used for unknown indication
     Route: 065
  9. CALCIUM\VITAMIN D [Concomitant]
     Active Substance: CALCIUM\VITAMIN D
     Indication: Product used for unknown indication
     Route: 065
  10. ACYCLOVIR [Concomitant]
     Active Substance: ACYCLOVIR
     Indication: Product used for unknown indication
     Route: 065
  11. ASPIRIN [Concomitant]
     Active Substance: ASPIRIN
     Indication: Product used for unknown indication
     Dosage: LOW DOSE ASPIRIN
     Route: 065
  12. ZOMETA [Concomitant]
     Active Substance: ZOLEDRONIC ACID
     Indication: Product used for unknown indication
     Route: 065
  13. VELCADE [Concomitant]
     Active Substance: BORTEZOMIB
     Indication: Product used for unknown indication
     Route: 065
  14. HYDROCODONE BITARTRATE W/PPA [Concomitant]
     Indication: Product used for unknown indication
     Route: 065

REACTIONS (11)
  - Cellulitis [Unknown]
  - Pruritus [Recovered/Resolved]
  - Urticaria [Unknown]
  - Decreased appetite [Unknown]
  - Headache [Unknown]
  - Diarrhoea [Unknown]
  - Dizziness [Unknown]
  - Hyperacusis [Unknown]
  - Photophobia [Unknown]
  - Blood pressure systolic [Unknown]
  - Gout [Recovering/Resolving]

NARRATIVE: CASE EVENT DATE: 20220410
